FAERS Safety Report 6172461-1 (Version None)
Quarter: 2009Q2

REPORT INFORMATION
  Report Type: 
  Country: None (occurrence: None)
  Receive Date: 20090429
  Receipt Date: 20090414
  Transmission Date: 20091009
  Serious: Yes (Hospitalization)
  Sender: FDA-Public Use
  Company Number: CA-GENENTECH-281484

PATIENT
  Sex: Male

DRUGS (1)
  1. OMALIZUMAB [Suspect]
     Indication: ASTHMA
     Dosage: 300 MG, Q4W
     Route: 058
     Dates: start: 20090219

REACTIONS (5)
  - CHEST PAIN [None]
  - DIARRHOEA [None]
  - HEART RATE INCREASED [None]
  - PYREXIA [None]
  - RESPIRATORY DISTRESS [None]
